FAERS Safety Report 7390657-8 (Version None)
Quarter: 2011Q2

REPORT INFORMATION
  Report Type: 
  Country: None (occurrence: None)
  Receive Date: 20110404
  Receipt Date: 20110324
  Transmission Date: 20111010
  Serious: No
  Sender: FDA-Public Use
  Company Number: US-BIOGENIDEC-2010BI041128

PATIENT
  Sex: Male

DRUGS (5)
  1. TRAMADOL [Concomitant]
     Indication: ARTHRALGIA
     Route: 048
     Dates: start: 20090101
  2. SYNTHROID [Concomitant]
     Indication: HYPOTHYROIDISM
     Route: 048
     Dates: start: 20070101
  3. TYSABRI [Suspect]
     Indication: CROHN'S DISEASE
     Route: 042
     Dates: start: 20100921
  4. ACETAMINOPHEN [Concomitant]
     Indication: ARTHRALGIA
     Route: 048
     Dates: start: 20090101
  5. TYSABRI [Suspect]
     Route: 042
     Dates: end: 20050101

REACTIONS (4)
  - ARTHRITIS ENTEROPATHIC [None]
  - RESTLESS LEGS SYNDROME [None]
  - BURNING SENSATION [None]
  - ARTHRALGIA [None]
